FAERS Safety Report 6975657-1 (Version None)
Quarter: 2010Q3

REPORT INFORMATION
  Report Type: 
  Country: None (occurrence: None)
  Receive Date: 20100910
  Receipt Date: 20090401
  Transmission Date: 20110219
  Serious: No
  Sender: FDA-Public Use
  Company Number: US-WYE-H08800209

PATIENT
  Sex: Female
  Weight: 68.1 kg

DRUGS (4)
  1. PRISTIQ [Suspect]
     Indication: DEPRESSION
     Route: 048
     Dates: start: 20090201
  2. XANAX [Concomitant]
  3. ORTHO EVRA [Interacting]
     Dosage: UNKNOWN
     Route: 062
     Dates: start: 20090320, end: 20090331
  4. LAMICTAL [Concomitant]

REACTIONS (8)
  - COUGH [None]
  - DIARRHOEA [None]
  - DRUG INTERACTION [None]
  - MALAISE [None]
  - NASOPHARYNGITIS [None]
  - RHINORRHOEA [None]
  - SNEEZING [None]
  - VOMITING [None]
